FAERS Safety Report 8815061 (Version 1)
Quarter: 2012Q4

REPORT INFORMATION
  Report Type: 
  Country: BR (occurrence: BR)
  Receive Date: 20120928
  Receipt Date: 20120928
  Transmission Date: 20130627
  Serious: Yes (Death, Hospitalization, Other)
  Sender: FDA-Public Use
  Company Number: BR-PFIZER INC-2012236455

PATIENT
  Age: 34 Year
  Sex: Female

DRUGS (1)
  1. CYTOTEC [Suspect]
     Route: 067

REACTIONS (4)
  - Off label use [Fatal]
  - Abortion complicated [Fatal]
  - Septic shock [Fatal]
  - Multi-organ failure [Fatal]
